FAERS Safety Report 4663181-0 (Version None)
Quarter: 2005Q2

REPORT INFORMATION
  Report Type: 
  Country: None (occurrence: None)
  Receive Date: 20050513
  Receipt Date: 20050507
  Transmission Date: 20051028
  Serious: Yes (Other)
  Sender: FDA-Public Use
  Company Number: 2005066919

PATIENT
  Age: 85 Year
  Sex: Female
  Weight: 47.6277 kg

DRUGS (4)
  1. NORPACE [Suspect]
     Indication: HEART RATE IRREGULAR
     Dosage: 300 MG (150 MG, BID INTERVAL:EVERY DAY), ORAL
     Route: 048
     Dates: start: 19870101
  2. ASPIRIN [Concomitant]
  3. CYANOCOBALAMIN-TANNIN COMPLEX (CYANOCOBALAMIN-TANNIN COMPLEX) [Concomitant]
  4. ALENDRONATE SODIUM [Concomitant]

REACTIONS (5)
  - BODY HEIGHT DECREASED [None]
  - CATARACT [None]
  - MACULAR DEGENERATION [None]
  - NAIL DISORDER [None]
  - PHARMACEUTICAL PRODUCT COMPLAINT [None]
